FAERS Safety Report 4854812-0 (Version None)
Quarter: 2005Q4

REPORT INFORMATION
  Report Type: 
  Country: None (occurrence: None)
  Receive Date: 20051215
  Receipt Date: 20051013
  Transmission Date: 20060501
  Serious: No
  Sender: FDA-Public Use
  Company Number: PHRM2005FR02755

PATIENT
  Age: 38 Year
  Sex: Female

DRUGS (7)
  1. ZOMETA [Suspect]
     Indication: BONE NEOPLASM MALIGNANT
     Dosage: UNK, UNK
     Route: 042
     Dates: start: 20050628, end: 20050729
  2. TOPALGIC [Concomitant]
  3. ACETAMINOPHEN [Concomitant]
  4. MYOLASTAN [Concomitant]
  5. RIVOTRIL [Concomitant]
  6. PRIMPERAN INJ [Concomitant]
  7. OROCAL D3 [Concomitant]

REACTIONS (4)
  - LENTICULAR OPACITIES [None]
  - OCULAR HYPERTENSION [None]
  - PHOTOPHOBIA [None]
  - VISUAL DISTURBANCE [None]
